FAERS Safety Report 19593207 (Version 2)
Quarter: 2021Q3

REPORT INFORMATION
  Report Type: Report from Study
  Country: BR (occurrence: BR)
  Receive Date: 20210722
  Receipt Date: 20210728
  Transmission Date: 20211014
  Serious: Yes (Death, Hospitalization, Other)
  Sender: FDA-Public Use
  Company Number: NVSC2021BR164713

PATIENT
  Age: 49 Year
  Sex: Female
  Weight: 40 kg

DRUGS (4)
  1. TAFINLAR [Suspect]
     Active Substance: DABRAFENIB MESYLATE
     Indication: MALIGNANT MELANOMA
     Dosage: 1 DF, Q12H
     Route: 048
     Dates: start: 202105, end: 202106
  2. MEKINIST [Suspect]
     Active Substance: TRAMETINIB DIMETHYL SULFOXIDE
     Indication: MALIGNANT MELANOMA
     Dosage: 1 DF, Q12H
     Route: 048
     Dates: start: 202105, end: 202106
  3. ANAFRANIL [Suspect]
     Active Substance: CLOMIPRAMINE HYDROCHLORIDE
     Indication: DEPRESSION
     Dosage: 1 DF, QD, (MANY YEARS AGO)
     Route: 048
  4. DIAZEPAM. [Concomitant]
     Active Substance: DIAZEPAM
     Indication: DEPRESSION
     Dosage: 1 DF, QD, (MANY YEARS AGO)
     Route: 048

REACTIONS (6)
  - Dysphagia [Not Recovered/Not Resolved]
  - Malignant neoplasm progression [Fatal]
  - Metastases to stomach [Not Recovered/Not Resolved]
  - Vomiting [Not Recovered/Not Resolved]
  - Malignant melanoma [Fatal]
  - Metastasis [Not Recovered/Not Resolved]

NARRATIVE: CASE EVENT DATE: 202105
